FAERS Safety Report 9780746 (Version 3)
Quarter: 2014Q1

REPORT INFORMATION
  Report Type: Spontaneous
  Country: BD (occurrence: BD)
  Receive Date: 20131224
  Receipt Date: 20140130
  Transmission Date: 20141002
  Serious: Yes (Death)
  Sender: FDA-Public Use
  Company Number: PHHY2013BD150944

PATIENT
  Age: 96 Year
  Sex: Female

DRUGS (1)
  1. EXELON PATCH [Suspect]
     Dosage: 4.6 MG DAILY (5 CM2)
     Route: 062

REACTIONS (1)
  - Death [Fatal]
